FAERS Safety Report 13453210 (Version 1)
Quarter: 2017Q2

REPORT INFORMATION
  Report Type: Spontaneous
  Country: US (occurrence: US)
  Receive Date: 20170418
  Receipt Date: 20170418
  Transmission Date: 20170830
  Serious: No
  Sender: FDA-Public Use
  Company Number: US-ALLERGAN-1659139US

PATIENT
  Sex: Female

DRUGS (2)
  1. CLEAR EYES [Concomitant]
     Active Substance: NAPHAZOLINE HYDROCHLORIDE
  2. LATISSE [Suspect]
     Active Substance: BIMATOPROST
     Indication: GROWTH OF EYELASHES
     Dosage: APPLICATOR PER EYELID,  NIGHTLY
     Route: 061
     Dates: start: 2011

REACTIONS (5)
  - Drug administered at inappropriate site [Unknown]
  - Wrong technique in product usage process [Unknown]
  - Blepharal pigmentation [Unknown]
  - Drug ineffective [Unknown]
  - Eyelids pruritus [Unknown]
